FAERS Safety Report 7813811 (Version 2)
Quarter: 2013Q4

REPORT INFORMATION
  Report Type: Spontaneous
  Country: CA (occurrence: CA)
  Receive Date: 20110216
  Receipt Date: 20131010
  Transmission Date: 20140711
  Serious: Yes (Other)
  Sender: FDA-Public Use
  Company Number: CA-RANBAXY-2011US-41668

PATIENT
  Age: 35 Year
  Sex: Male
  Weight: 114 kg

DRUGS (1)
  1. RISPERIDONE [Suspect]
     Indication: SCHIZOPHRENIA
     Dosage: 3 MG, BID
     Route: 065

REACTIONS (1)
  - Ventricular tachycardia [Recovered/Resolved]
